FAERS Safety Report 24451307 (Version 1)
Quarter: 2024Q4

REPORT INFORMATION
  Report Type: Spontaneous
  Country: US (occurrence: None)
  Receive Date: 20241017
  Receipt Date: 20241017
  Transmission Date: 20250114
  Serious: Yes (Congenital Anomaly, Other)
  Sender: Public
  Company Number: None

PATIENT
  Age: 0 Year
  Sex: Male
  Weight: 2.37 kg

DRUGS (2)
  1. LAMICTAL [Suspect]
     Active Substance: LAMOTRIGINE
     Dates: start: 20201228
  2. FLUOXETINE [Suspect]
     Active Substance: FLUOXETINE HYDROCHLORIDE
     Dates: start: 20201228

REACTIONS (5)
  - Escherichia sepsis [None]
  - Bradycardia [None]
  - Cholestasis [None]
  - Meningitis [None]
  - Thrombocytopenia [None]

NARRATIVE: CASE EVENT DATE: 20210708
